FAERS Safety Report 10959307 (Version 1)
Quarter: 2015Q1

REPORT INFORMATION
  Report Type: Spontaneous
  Country: US (occurrence: US)
  Receive Date: 20150327
  Receipt Date: 20150327
  Transmission Date: 20150721
  Serious: Yes (Death)
  Sender: FDA-Public Use
  Company Number: US-CIPLA LTD.-2015US02435

PATIENT

DRUGS (8)
  1. DEXTROMETHORPHAN [Suspect]
     Active Substance: DEXTROMETHORPHAN
  2. HEROIN [Suspect]
     Active Substance: DIACETYLMORPHINE
  3. ETHANOL [Suspect]
     Active Substance: ALCOHOL
  4. CITALOPRAM [Suspect]
     Active Substance: CITALOPRAM HYDROBROMIDE
  5. LEVETIRACETAM. [Suspect]
     Active Substance: LEVETIRACETAM
  6. DIAZEPAM. [Suspect]
     Active Substance: DIAZEPAM
  7. OXYCODONE [Suspect]
     Active Substance: OXYCODONE
  8. QUININE [Suspect]
     Active Substance: QUININE

REACTIONS (1)
  - Drug abuse [Fatal]
